FAERS Safety Report 16439926 (Version 1)
Quarter: 2019Q3

REPORT INFORMATION
  Report Type: Spontaneous
  Country: US (occurrence: US)
  Receive Date: 20190616
  Receipt Date: 20190616
  Transmission Date: 20191004
  Serious: No
  Sender: FDA-Public Use
  Company Number: None

PATIENT
  Age: 57 Year
  Sex: Male
  Weight: 76.5 kg

DRUGS (2)
  1. TUSSIN DM [Suspect]
     Active Substance: DEXTROMETHORPHAN HYDROBROMIDE\GUAIFENESIN
     Indication: COUGH
     Dosage: ?          QUANTITY:10 ML;?
     Route: 048
     Dates: start: 20190526, end: 20190601
  2. PULMICORT TURBUHALER [Concomitant]
     Active Substance: BUDESONIDE

REACTIONS (3)
  - Overdose [None]
  - Product administration error [None]
  - Device issue [None]

NARRATIVE: CASE EVENT DATE: 20190601
